FAERS Safety Report 20744652 (Version 1)
Quarter: 2022Q2

REPORT INFORMATION
  Report Type: Spontaneous
  Country: US (occurrence: US)
  Receive Date: 20220425
  Receipt Date: 20220425
  Transmission Date: 20220720
  Serious: No
  Sender: FDA-Public Use
  Company Number: US-PFIZER INC-202101112253

PATIENT
  Age: 80 Year
  Sex: Male
  Weight: 84.82 kg

DRUGS (1)
  1. CHANTIX [Suspect]
     Active Substance: VARENICLINE TARTRATE
     Indication: Smoking cessation therapy
     Dosage: 1 MG, 2X/DAY (, MORNING AND EVENING)
     Route: 048
     Dates: start: 202106

REACTIONS (2)
  - Sleep disorder [Unknown]
  - Intentional product use issue [Unknown]
